FAERS Safety Report 25719502 (Version 1)
Quarter: 2025Q3

REPORT INFORMATION
  Report Type: Spontaneous
  Country: BR (occurrence: BR)
  Receive Date: 20250824
  Receipt Date: 20250824
  Transmission Date: 20251021
  Serious: Yes (Other)
  Sender: AMGEN
  Company Number: BR-AMGEN-BRASP2025165564

PATIENT
  Age: 86 Year
  Sex: Male

DRUGS (1)
  1. REPATHA [Suspect]
     Active Substance: EVOLOCUMAB
     Indication: Stent placement
     Dosage: UNK, QMO
     Route: 065
     Dates: start: 2018

REACTIONS (2)
  - Deafness [Unknown]
  - Intentional product misuse [Unknown]
